FAERS Safety Report 23829633 (Version 2)
Quarter: 2024Q3

REPORT INFORMATION
  Report Type: Spontaneous
  Country: US (occurrence: US)
  Receive Date: 20240508
  Receipt Date: 20240821
  Transmission Date: 20241017
  Serious: No
  Sender: BIOGEN
  Company Number: US-BIOGEN-2024BI01263002

PATIENT
  Age: 37 Year
  Sex: Female

DRUGS (2)
  1. ZURZUVAE [Suspect]
     Active Substance: ZURANOLONE
     Indication: Perinatal depression
     Route: 050
     Dates: start: 20240418
  2. SYNTHROID [Concomitant]
     Active Substance: LEVOTHYROXINE SODIUM
     Indication: Product used for unknown indication
     Route: 050

REACTIONS (6)
  - Sluggishness [Unknown]
  - Migraine [Unknown]
  - Somnolence [Unknown]
  - Hypoaesthesia [Unknown]
  - Tremor [Unknown]
  - Sedation [Unknown]

NARRATIVE: CASE EVENT DATE: 20240401
